FAERS Safety Report 6552674-7 (Version None)
Quarter: 2010Q1

REPORT INFORMATION
  Report Type: 
  Country: None (occurrence: None)
  Receive Date: 20100126
  Receipt Date: 20100121
  Transmission Date: 20100710
  Serious: Yes (Congenital Anomaly)
  Sender: FDA-Public Use
  Company Number: B0623512A

PATIENT
  Sex: Female

DRUGS (12)
  1. ZIDOVUDINE [Suspect]
     Indication: HIV INFECTION
  2. TENOFOVIR [Suspect]
     Indication: HIV INFECTION
     Dosage: 300MG PER DAY
  3. EMTRICITABINE [Suspect]
     Indication: HIV INFECTION
     Dosage: 200MG PER DAY
  4. EFAVIRENZ [Suspect]
     Indication: HIV INFECTION
     Dosage: 600MG PER DAY
  5. DIAZEPAM [Suspect]
     Dosage: 5MG THREE TIMES PER DAY
  6. OXAZEPAM [Suspect]
  7. NITRAZEPAM [Suspect]
  8. MIRTAZAPINE [Suspect]
     Dosage: 30MG PER DAY
  9. ALCOHOL [Suspect]
  10. CODEINE [Suspect]
  11. PARACETAMOL [Suspect]
  12. OLANZAPINE [Suspect]
     Dosage: 5MG PER DAY

REACTIONS (3)
  - CARDIAC DISORDER [None]
  - CONGENITAL TRICUSPID VALVE ATRESIA [None]
  - DRUG EXPOSURE DURING PREGNANCY [None]
